FAERS Safety Report 4726060-6 (Version None)
Quarter: 2005Q3

REPORT INFORMATION
  Report Type: 
  Country: None (occurrence: None)
  Receive Date: 20050726
  Receipt Date: 20050726
  Transmission Date: 20060218
  Serious: Yes (Other)
  Sender: FDA-Public Use
  Company Number: None

PATIENT
  Age: 39 Year
  Sex: Male
  Weight: 113.3993 kg

DRUGS (2)
  1. SYNTHROID [Suspect]
     Indication: HYPOTHYROIDISM
     Dosage: 1 TABLET DAILY ORAL
     Route: 048
     Dates: start: 20050301, end: 20050725
  2. PAXIL [Suspect]
     Indication: ANXIETY
     Dosage: 1 TABLET DAILY ORAL
     Route: 048
     Dates: start: 20020901, end: 20050725

REACTIONS (1)
  - ABDOMINAL PAIN UPPER [None]
